FAERS Safety Report 8218029-4 (Version None)
Quarter: 2012Q1

REPORT INFORMATION
  Report Type: 
  Country: None (occurrence: None)
  Receive Date: 20120319
  Receipt Date: 20120314
  Transmission Date: 20120608
  Serious: Yes (Hospitalization, Other)
  Sender: FDA-Public Use
  Company Number: US-PFIZER INC-2008150443

PATIENT
  Sex: Female
  Weight: 95 kg

DRUGS (11)
  1. EFFEXOR XR [Concomitant]
     Dosage: UNK
  2. CHANTIX [Suspect]
     Dosage: 0.5 MG, 1X/DAY
     Dates: start: 20081118, end: 20081101
  3. GABAPENTIN [Concomitant]
     Indication: FIBROMYALGIA
     Dosage: UNK
  4. CYMBALTA [Concomitant]
     Indication: FIBROMYALGIA
     Dosage: UNK
     Dates: start: 20070101, end: 20090101
  5. CHANTIX [Suspect]
     Indication: SMOKING CESSATION THERAPY
     Dosage: UNK
     Dates: start: 20081113, end: 20081202
  6. CHANTIX [Suspect]
     Dosage: 1 MG, 2X/DAY
     Dates: start: 20081101
  7. PIROXICAM [Concomitant]
     Dosage: UNK
  8. LYRICA [Concomitant]
     Indication: FIBROMYALGIA
     Dosage: UNK
     Dates: start: 20070101, end: 20090101
  9. CYMBALTA [Concomitant]
     Indication: NEURALGIA
  10. CYCLOBENZAPRINE HCL [Concomitant]
     Indication: FIBROMYALGIA
     Dosage: UNK
     Dates: start: 20070101, end: 20090101
  11. FLEXERIL [Concomitant]
     Indication: FIBROMYALGIA
     Dosage: UNK
     Dates: start: 20070101, end: 20090101

REACTIONS (14)
  - PARANOIA [None]
  - DELUSION [None]
  - PANIC ATTACK [None]
  - AGITATION [None]
  - DEPRESSION [None]
  - HALLUCINATION, AUDITORY [None]
  - INSOMNIA [None]
  - ANGER [None]
  - ANXIETY [None]
  - ABNORMAL DREAMS [None]
  - HOMICIDAL IDEATION [None]
  - PSYCHOTIC DISORDER [None]
  - AGGRESSION [None]
  - SUICIDAL BEHAVIOUR [None]
